FAERS Safety Report 6711971-2 (Version None)
Quarter: 2010Q2

REPORT INFORMATION
  Report Type: 
  Country: None (occurrence: None)
  Receive Date: 20100505
  Receipt Date: 20100427
  Transmission Date: 20101027
  Serious: Yes (Hospitalization)
  Sender: FDA-Public Use
  Company Number: US-AMGEN-KDC408675

PATIENT
  Sex: Female

DRUGS (9)
  1. NEULASTA [Suspect]
     Indication: DRUG USE FOR UNKNOWN INDICATION
     Dates: start: 20100319, end: 20100319
  2. BEVACIZUMAB [Suspect]
     Route: 042
     Dates: start: 20100318
  3. TRASTUZUMAB [Suspect]
     Route: 042
     Dates: start: 20100318
  4. DOCETAXEL [Suspect]
     Route: 042
     Dates: start: 20100318
  5. CARBOPLATIN [Suspect]
     Route: 042
     Dates: start: 20100318
  6. ACTONEL [Concomitant]
  7. CALCIUM SUPPLEMENT [Concomitant]
  8. ASPIRIN [Concomitant]
  9. MULTI-VITAMINS [Concomitant]

REACTIONS (1)
  - MUSCULOSKELETAL CHEST PAIN [None]
